FAERS Safety Report 5254270-0 (Version None)
Quarter: 2007Q1

REPORT INFORMATION
  Report Type: 
  Country: None (occurrence: None)
  Receive Date: 20070302
  Receipt Date: 20070223
  Transmission Date: 20070707
  Serious: Yes (Hospitalization)
  Sender: FDA-Public Use
  Company Number: JP-JPN-A200600182

PATIENT
  Age: 74 Year
  Sex: Male

DRUGS (6)
  1. VALTREX [Suspect]
     Indication: HERPES ZOSTER
     Dosage: 1000MG THREE TIMES PER DAY
     Route: 048
     Dates: start: 20060109, end: 20060110
  2. UNKNOWN DRUG [Suspect]
  3. ARTIST [Concomitant]
     Route: 048
  4. ASPIRIN [Concomitant]
     Route: 048
  5. TAKEPRON [Concomitant]
     Route: 048
  6. MECOBALAMIN [Concomitant]
     Route: 065

REACTIONS (3)
  - DYSARTHRIA [None]
  - PSYCHIATRIC SYMPTOM [None]
  - RENAL FAILURE [None]
